FAERS Safety Report 6253729-7 (Version None)
Quarter: 2009Q2

REPORT INFORMATION
  Report Type: 
  Country: None (occurrence: None)
  Receive Date: 20090630
  Receipt Date: 20090619
  Transmission Date: 20091009
  Serious: Yes (Disabling)
  Sender: FDA-Public Use
  Company Number: APP200800888

PATIENT
  Age: 39 Year
  Sex: Female

DRUGS (29)
  1. MARCAINE [Suspect]
     Indication: MUSCULOSKELETAL PAIN
     Dosage: 120 ML, 0.5% CONTINOUS VIA PAIN PUMP; 120 MG, 2.08 MG/HR CONTINOUS VIA PAIN PUMP; 3ML
     Dates: start: 20020909
  2. MARCAINE [Suspect]
     Indication: NERVE BLOCK
     Dosage: 120 ML, 0.5% CONTINOUS VIA PAIN PUMP; 120 MG, 2.08 MG/HR CONTINOUS VIA PAIN PUMP; 3ML
     Dates: start: 20020909
  3. MARCAINE [Suspect]
     Indication: MUSCULOSKELETAL PAIN
     Dosage: 120 ML, 0.5% CONTINOUS VIA PAIN PUMP; 120 MG, 2.08 MG/HR CONTINOUS VIA PAIN PUMP; 3ML
     Dates: start: 20030331
  4. MARCAINE [Suspect]
     Indication: NERVE BLOCK
     Dosage: 120 ML, 0.5% CONTINOUS VIA PAIN PUMP; 120 MG, 2.08 MG/HR CONTINOUS VIA PAIN PUMP; 3ML
     Dates: start: 20030331
  5. MARCAINE [Suspect]
     Indication: MUSCULOSKELETAL PAIN
     Dosage: 120 ML, 0.5% CONTINOUS VIA PAIN PUMP; 120 MG, 2.08 MG/HR CONTINOUS VIA PAIN PUMP; 3ML
     Dates: start: 20031110
  6. MARCAINE [Suspect]
     Indication: NERVE BLOCK
     Dosage: 120 ML, 0.5% CONTINOUS VIA PAIN PUMP; 120 MG, 2.08 MG/HR CONTINOUS VIA PAIN PUMP; 3ML
     Dates: start: 20031110
  7. SENSORCAINE [Suspect]
     Indication: MUSCULOSKELETAL PAIN
     Dosage: 120 MG, 0.5% CONTINUOUS VIA PAIN PUMP
     Dates: start: 20030331
  8. ROPIVACAINE (ROPIVACAINE) [Suspect]
     Indication: ANAESTHESIA
     Dosage: SEE IMAGE
     Dates: start: 20030331, end: 20030331
  9. ROPIVACAINE (ROPIVACAINE) [Suspect]
     Indication: MUSCULOSKELETAL PAIN
     Dosage: SEE IMAGE
     Dates: start: 20030331, end: 20030331
  10. ROPIVACAINE (ROPIVACAINE) [Suspect]
     Indication: NERVE BLOCK
     Dosage: SEE IMAGE
     Dates: start: 20030331, end: 20030331
  11. ROPIVACAINE (ROPIVACAINE) [Suspect]
     Indication: ANAESTHESIA
     Dosage: SEE IMAGE
     Dates: start: 20030630, end: 20030630
  12. ROPIVACAINE (ROPIVACAINE) [Suspect]
     Indication: MUSCULOSKELETAL PAIN
     Dosage: SEE IMAGE
     Dates: start: 20030630, end: 20030630
  13. ROPIVACAINE (ROPIVACAINE) [Suspect]
     Indication: NERVE BLOCK
     Dosage: SEE IMAGE
     Dates: start: 20030630, end: 20030630
  14. ROPIVACAINE (ROPIVACAINE) [Suspect]
     Indication: ANAESTHESIA
     Dosage: SEE IMAGE
     Dates: start: 20030926, end: 20030926
  15. ROPIVACAINE (ROPIVACAINE) [Suspect]
     Indication: MUSCULOSKELETAL PAIN
     Dosage: SEE IMAGE
     Dates: start: 20030926, end: 20030926
  16. ROPIVACAINE (ROPIVACAINE) [Suspect]
     Indication: NERVE BLOCK
     Dosage: SEE IMAGE
     Dates: start: 20030926, end: 20030926
  17. ROPIVACAINE (ROPIVACAINE) [Suspect]
     Indication: ANAESTHESIA
     Dosage: SEE IMAGE
     Dates: start: 20050318, end: 20050318
  18. ROPIVACAINE (ROPIVACAINE) [Suspect]
     Indication: MUSCULOSKELETAL PAIN
     Dosage: SEE IMAGE
     Dates: start: 20050318, end: 20050318
  19. ROPIVACAINE (ROPIVACAINE) [Suspect]
     Indication: NERVE BLOCK
     Dosage: SEE IMAGE
     Dates: start: 20050318, end: 20050318
  20. ROPIVACAINE (ROPIVACAINE) [Suspect]
     Indication: ANAESTHESIA
     Dosage: SEE IMAGE
     Dates: start: 20050318
  21. ROPIVACAINE (ROPIVACAINE) [Suspect]
     Indication: MUSCULOSKELETAL PAIN
     Dosage: SEE IMAGE
     Dates: start: 20050318
  22. ROPIVACAINE (ROPIVACAINE) [Suspect]
     Indication: NERVE BLOCK
     Dosage: SEE IMAGE
     Dates: start: 20050318
  23. STRYKER PAIN PUMP [Suspect]
     Indication: MUSCULOSKELETAL PAIN
     Dates: start: 20020909
  24. STRYKER PAIN PUMP [Suspect]
     Indication: MUSCULOSKELETAL PAIN
     Dates: start: 20030331
  25. I-FLOW ON Q C-BLOC PAIN PUMP [Suspect]
     Indication: MUSCULOSKELETAL PAIN
     Dates: start: 20050318
  26. ROPIVACAINE/LIDOCAINE/KENALOG/NORMAL SALINE [Concomitant]
  27. BUPIVACAINE/DEPO-MEDROL [Concomitant]
  28. MARCAINE HYDROCHLORIDE W/ EPINEPHRINE [Concomitant]
  29. ANCEF [Concomitant]

REACTIONS (22)
  - CELLULITIS [None]
  - CHONDROLYSIS [None]
  - CHONDROMALACIA [None]
  - DEBRIDEMENT [None]
  - DISCOMFORT [None]
  - GRAFT LOSS [None]
  - INFLAMMATORY PAIN [None]
  - INJECTION SITE DISCHARGE [None]
  - INJECTION SITE ERYTHEMA [None]
  - JOINT RANGE OF MOTION DECREASED [None]
  - MEDICAL DEVICE REMOVAL [None]
  - MUSCULOSKELETAL PAIN [None]
  - MUSCULOSKELETAL STIFFNESS [None]
  - OEDEMA PERIPHERAL [None]
  - OSTEOARTHRITIS [None]
  - PERIARTHRITIS [None]
  - PERIPHERAL NERVE DESTRUCTION [None]
  - PROCEDURAL PAIN [None]
  - PURULENCE [None]
  - ROTATOR CUFF REPAIR [None]
  - SHOULDER ARTHROPLASTY [None]
  - TENDON GRAFT [None]
